FAERS Safety Report 9106263 (Version 3)
Quarter: 2013Q2

REPORT INFORMATION
  Report Type: Spontaneous
  Country: US (occurrence: US)
  Receive Date: 20130221
  Receipt Date: 20130408
  Transmission Date: 20140414
  Serious: Yes (Other)
  Sender: FDA-Public Use
  Company Number: US-PFIZER INC-2013061595

PATIENT
  Age: 85 Year
  Sex: Female
  Weight: 41 kg

DRUGS (3)
  1. XALATAN [Suspect]
     Indication: GLAUCOMA
     Dosage: 1 GTT, 1X/DAY
     Route: 047
  2. BABY ASPIRIN [Concomitant]
     Dosage: UNK, 1X/DAY
  3. ICAPS [Concomitant]
     Dosage: UNK

REACTIONS (4)
  - Macular degeneration [Unknown]
  - Visual impairment [Unknown]
  - Body height decreased [Unknown]
  - Product quality issue [Unknown]
